FAERS Safety Report 12852823 (Version 1)
Quarter: 2016Q4

REPORT INFORMATION
  Report Type: Spontaneous
  Country: GB (occurrence: GB)
  Receive Date: 20161017
  Receipt Date: 20161017
  Transmission Date: 20170207
  Serious: Yes (Hospitalization)
  Sender: FDA-Public Use
  Company Number: GB-ACCORD-044844

PATIENT
  Age: 84 Year
  Sex: Male

DRUGS (5)
  1. DONEPEZIL/DONEPEZIL HYDROCHLORIDE [Suspect]
     Active Substance: DONEPEZIL HYDROCHLORIDE
     Indication: DEMENTIA ALZHEIMER^S TYPE
     Dosage: AT BEDTIME
     Route: 048
     Dates: end: 20160929
  2. QUETIAPINE/QUETIAPINE FUMARATE [Concomitant]
  3. IRON [Concomitant]
     Active Substance: IRON
  4. PARACETAMOL [Concomitant]
     Active Substance: ACETAMINOPHEN
  5. LAXIDO [Concomitant]
     Active Substance: POLYETHYLENE GLYCOL 3350\POTASSIUM CHLORIDE\SODIUM BICARBONATE\SODIUM CHLORIDE

REACTIONS (3)
  - Cold sweat [Recovered/Resolved]
  - Unresponsive to stimuli [Recovered/Resolved]
  - Sinus bradycardia [Recovered/Resolved]
